FAERS Safety Report 23989906 (Version 1)
Quarter: 2024Q2

REPORT INFORMATION
  Report Type: Spontaneous
  Country: DE (occurrence: DE)
  Receive Date: 20240619
  Receipt Date: 20240619
  Transmission Date: 20240716
  Serious: Yes (Other)
  Sender: FDA-Public Use
  Company Number: DE-TEVA-VS-3210950

PATIENT
  Age: 82 Year

DRUGS (8)
  1. AMLODIPINE BESYLATE [Suspect]
     Active Substance: AMLODIPINE BESYLATE
     Indication: Hypertension
     Dosage: [BESILAT] ABZ 5 MG TABLETTEN
     Route: 048
     Dates: start: 202304, end: 20240421
  2. CANDESARTAN CILEXETIL [Concomitant]
     Active Substance: CANDESARTAN CILEXETIL
     Route: 065
  3. ELIQUIS [Concomitant]
     Active Substance: APIXABAN
     Route: 065
  4. METOPROLOL [Concomitant]
     Active Substance: METOPROLOL
     Route: 065
  5. SIMVASTATIN [Concomitant]
     Active Substance: SIMVASTATIN
     Route: 065
  6. MAGNESIUM [Concomitant]
     Active Substance: MAGNESIUM
     Route: 065
  7. Novodigal [Concomitant]
     Route: 065
  8. SPIRONOLACTONE [Concomitant]
     Active Substance: SPIRONOLACTONE
     Route: 065

REACTIONS (4)
  - Head banging [Unknown]
  - Fall [Unknown]
  - Therapy cessation [Unknown]
  - Dizziness [Unknown]
